FAERS Safety Report 10010461 (Version 3)
Quarter: 2014Q2

REPORT INFORMATION
  Report Type: Spontaneous
  Country: DE (occurrence: DE)
  Receive Date: 20140314
  Receipt Date: 20140606
  Transmission Date: 20141212
  Serious: Yes (Death)
  Sender: FDA-Public Use
  Company Number: DE-BEH-2014041060

PATIENT
  Sex: Female

DRUGS (4)
  1. BERIPLEX P/N 500 [Suspect]
     Indication: ANTICOAGULANT THERAPY
     Dates: start: 20071028
  2. DEXAMETHASONE [Suspect]
     Dates: start: 20071028, end: 20071031
  3. DEXAMETHASONE [Concomitant]
  4. PHENPROCOUMON [Concomitant]

REACTIONS (3)
  - Acute myocardial infarction [Fatal]
  - Thrombosis in device [Fatal]
  - Cardiac arrest [Fatal]
